FAERS Safety Report 9003532 (Version 2)
Quarter: 2013Q1

REPORT INFORMATION
  Report Type: Spontaneous
  Country: AT (occurrence: AT)
  Receive Date: 20130108
  Receipt Date: 20130204
  Transmission Date: 20140127
  Serious: Yes (Other)
  Sender: FDA-Public Use
  Company Number: PHHY2013AT001620

PATIENT
  Age: 35 Year
  Sex: Male

DRUGS (3)
  1. DOXORUBICIN [Suspect]
     Indication: METASTATIC MALIGNANT MELANOMA
  2. IFOSFAMIDE [Suspect]
     Indication: METASTATIC MALIGNANT MELANOMA
  3. DTIC-DOME [Suspect]

REACTIONS (3)
  - General physical health deterioration [Recovered/Resolved]
  - Drug intolerance [Unknown]
  - Drug ineffective [Unknown]
